FAERS Safety Report 19936026 (Version 5)
Quarter: 2021Q4

REPORT INFORMATION
  Report Type: Report from Study
  Country: JP (occurrence: JP)
  Receive Date: 20211008
  Receipt Date: 20211130
  Transmission Date: 20220303
  Serious: Yes (Hospitalization)
  Sender: FDA-Public Use
  Company Number: JP-BRISTOL-MYERS SQUIBB COMPANY-BMS-2021-101716

PATIENT
  Age: 65 Year
  Sex: Male
  Weight: 83 kg

DRUGS (11)
  1. NIVOLUMAB [Suspect]
     Active Substance: NIVOLUMAB
     Indication: Gastric cancer
     Dosage: 480 MILLIGRAM, Q4WK
     Route: 041
     Dates: start: 20210317, end: 20210909
  2. BMS-986310 [Suspect]
     Active Substance: BMS-986310
     Indication: Gastric cancer
     Dosage: 40 MILLIGRAM, QD
     Route: 048
     Dates: start: 20210317, end: 20210920
  3. NORVASC [Concomitant]
     Active Substance: AMLODIPINE BESYLATE
     Indication: Hypertension
     Dosage: 5 MILLIGRAM, Q12H
     Route: 048
     Dates: start: 20210404
  4. CANDESARTAN CILEXETIL\HYDROCHLOROTHIAZIDE [Concomitant]
     Active Substance: CANDESARTAN CILEXETIL\HYDROCHLOROTHIAZIDE
     Indication: Hypertension
     Dosage: 1 DOSAGE FORM, QD
     Route: 048
  5. CARDENALIN [Concomitant]
     Active Substance: DOXAZOSIN MESYLATE
     Indication: Hypertension
     Dosage: 2 MILLIGRAM, Q12H
     Route: 048
  6. SODIUM FERROUS CITRATE [Concomitant]
     Active Substance: SODIUM FERROUS CITRATE
     Indication: Anaemia prophylaxis
     Dosage: 100 MILLIGRAM, QD
     Route: 048
  7. FAMOTIDINE [Concomitant]
     Active Substance: FAMOTIDINE
     Indication: Gastrooesophageal reflux disease
     Dosage: 40 MILLIGRAM, QD
     Route: 048
  8. RUPAFIN [Concomitant]
     Active Substance: RUPATADINE FUMARATE
     Indication: Pruritus
     Dosage: 10 MILLIGRAM, QD
     Route: 048
  9. FUROSEMIDE [Concomitant]
     Active Substance: FUROSEMIDE
     Indication: Oedema
     Dosage: 20 MILLIGRAM, QD
     Route: 048
     Dates: start: 20210921, end: 20210924
  10. SPIRONOLACTONE [Concomitant]
     Active Substance: SPIRONOLACTONE
     Indication: Oedema
     Dosage: 25 MILLIGRAM, Q12H
     Route: 048
     Dates: start: 20210921, end: 20210924
  11. AMLODIPINE BESYLATE [Concomitant]
     Active Substance: AMLODIPINE BESYLATE
     Indication: Product used for unknown indication
     Dosage: 5 MILLIGRAM, QD
     Route: 065
     Dates: start: 20211019

REACTIONS (1)
  - Hypopituitarism [Recovering/Resolving]

NARRATIVE: CASE EVENT DATE: 20210929
